FAERS Safety Report 19478755 (Version 1)
Quarter: 2021Q2

REPORT INFORMATION
  Report Type: Spontaneous
  Country: IN (occurrence: IN)
  Receive Date: 20210630
  Receipt Date: 20210630
  Transmission Date: 20210717
  Serious: Yes (Death)
  Sender: FDA-Public Use
  Company Number: IN-PFIZER INC-2020396907

PATIENT
  Age: 61 Year
  Sex: Female

DRUGS (2)
  1. LORBRIQUA [Suspect]
     Active Substance: LORLATINIB
     Indication: NON-SMALL CELL LUNG CANCER STAGE III
     Dosage: 50 MG, CYCLIC (ONCE DAILY FOR 2 WEEKS)
     Route: 048
     Dates: start: 20201013
  2. LORBRIQUA [Suspect]
     Active Substance: LORLATINIB
     Dosage: 75 MG, 1X/DAY(FOR 2 WEEKS)
     Route: 048
     Dates: start: 20201013

REACTIONS (1)
  - Death [Fatal]
